FAERS Safety Report 18278954 (Version 1)
Quarter: 2020Q3

REPORT INFORMATION
  Report Type: Spontaneous
  Country: US (occurrence: US)
  Receive Date: 20200917
  Receipt Date: 20200917
  Transmission Date: 20201103
  Serious: No
  Sender: FDA-Public Use
  Company Number: US-ELI_LILLY_AND_COMPANY-US202008008421

PATIENT
  Age: 73 Year
  Sex: Male

DRUGS (8)
  1. TRESIBA [Concomitant]
     Active Substance: INSULIN DEGLUDEC
     Indication: TYPE 2 DIABETES MELLITUS
  2. HUMALOG [Suspect]
     Active Substance: INSULIN LISPRO
     Indication: TYPE 2 DIABETES MELLITUS
     Dosage: 4?5 U, PRN
     Route: 065
  3. HUMALOG [Suspect]
     Active Substance: INSULIN LISPRO
     Dosage: 4?5U, PRN
     Route: 065
  4. HUMALOG [Suspect]
     Active Substance: INSULIN LISPRO
     Indication: TYPE 2 DIABETES MELLITUS
     Dosage: 4?5 U, PRN
     Route: 065
  5. HUMALOG [Suspect]
     Active Substance: INSULIN LISPRO
     Indication: TYPE 2 DIABETES MELLITUS
     Dosage: 4?5 U, PRN
     Route: 065
  6. HUMALOG [Suspect]
     Active Substance: INSULIN LISPRO
     Dosage: 4?5 U, PRN
     Route: 065
  7. HUMALOG [Suspect]
     Active Substance: INSULIN LISPRO
     Dosage: 4?5 U, PRN
     Route: 065
  8. HUMALOG [Suspect]
     Active Substance: INSULIN LISPRO
     Dosage: 4?5U, PRN
     Route: 065

REACTIONS (3)
  - Product dose omission issue [Recovered/Resolved]
  - Blood glucose decreased [Recovered/Resolved]
  - Blood glucose increased [Recovering/Resolving]

NARRATIVE: CASE EVENT DATE: 20200819
